FAERS Safety Report 24668408 (Version 1)
Quarter: 2024Q4

REPORT INFORMATION
  Report Type: Spontaneous
  Country: CN (occurrence: CN)
  Receive Date: 20241127
  Receipt Date: 20241127
  Transmission Date: 20250114
  Serious: Yes (Other)
  Sender: BAXTER
  Company Number: None

PATIENT
  Age: 68 Year
  Sex: Female

DRUGS (2)
  1. MANNITOL [Suspect]
     Active Substance: MANNITOL
     Indication: Arthritis
     Dosage: 250 ML ONCE DAILY (DOSAGE FORM: INJECTION)
     Route: 042
     Dates: start: 20241118, end: 20241118
  2. MANNITOL [Suspect]
     Active Substance: MANNITOL
     Indication: Cerebrovascular disorder

REACTIONS (3)
  - Pallor [Recovering/Resolving]
  - Blood pressure decreased [Recovering/Resolving]
  - Dyspnoea [Recovering/Resolving]

NARRATIVE: CASE EVENT DATE: 20241118
